FAERS Safety Report 9553535 (Version 1)
Quarter: 2013Q3

REPORT INFORMATION
  Report Type: Spontaneous
  Country: FR (occurrence: FR)
  Receive Date: 20130925
  Receipt Date: 20130925
  Transmission Date: 20140515
  Serious: Yes (Hospitalization)
  Sender: FDA-Public Use
  Company Number: FR-ROCHE-1280281

PATIENT
  Age: 72 Year
  Sex: Male

DRUGS (6)
  1. ROCEPHINE [Suspect]
     Indication: LUNG DISORDER
     Route: 042
     Dates: start: 20121024, end: 20121028
  2. PERINDOPRIL [Concomitant]
     Route: 065
  3. PARACETAMOL [Concomitant]
     Route: 065
  4. LEVODOPA SR [Concomitant]
     Route: 065
  5. MACROGOL [Concomitant]
  6. TRAMADOL [Concomitant]
     Route: 065

REACTIONS (2)
  - Hepatocellular injury [Recovered/Resolved]
  - Cholestasis [Recovering/Resolving]
